FAERS Safety Report 10253760 (Version 1)
Quarter: 2014Q2

REPORT INFORMATION
  Report Type: Report from Study
  Country: GB (occurrence: GB)
  Receive Date: 20140623
  Receipt Date: 20140623
  Transmission Date: 20141212
  Serious: Yes (Other)
  Sender: FDA-Public Use
  Company Number: ALCN2014GB003673

PATIENT
  Age: 78 Year
  Sex: Female

DRUGS (1)
  1. TRIAMCINOLONE ACETONIDE [Suspect]
     Indication: RETINAL VEIN OCCLUSION
     Route: 031

REACTIONS (1)
  - Cytomegalovirus chorioretinitis [Unknown]
